FAERS Safety Report 15676626 (Version 12)
Quarter: 2021Q3

REPORT INFORMATION
  Report Type: Report from Study
  Country: GB (occurrence: GB)
  Receive Date: 20181130
  Receipt Date: 20210914
  Transmission Date: 20211014
  Serious: Yes (Death, Other)
  Sender: FDA-Public Use
  Company Number: GB-PFIZER INC-2018492250

PATIENT

DRUGS (4)
  1. DACARBAZINE. [Suspect]
     Active Substance: DACARBAZINE
     Indication: HODGKIN^S DISEASE
     Dosage: 375 MG/M2, CYCLIC (DAYS 1 AND 15, UP TO SIX 28?DAY CYCLES)
  2. DOXORUBICIN HYDROCHLORIDE. [Suspect]
     Active Substance: DOXORUBICIN HYDROCHLORIDE
     Indication: HODGKIN^S DISEASE
     Dosage: 25MG/M2, CYCLIC (DAYS 1 AND 15, UP TO SIX 28?DAY CYCLES)
  3. VINBLASTINE [Suspect]
     Active Substance: VINBLASTINE
     Indication: HODGKIN^S DISEASE
     Dosage: 6 MG/M2, CYCLIC (DAYS 1 AND 15, UP TO SIX 28?DAY CYCLES)
  4. BRENTUXIMAB VEDOTIN [Suspect]
     Active Substance: BRENTUXIMAB VEDOTIN
     Indication: HODGKIN^S DISEASE
     Dosage: 1.2 MG/KG, CYCLIC (DAYS 1 AND 15, UP TO SIX 28?DAY CYCLES)

REACTIONS (1)
  - Neutropenia [Fatal]
